FAERS Safety Report 10167068 (Version 1)
Quarter: 2014Q2

REPORT INFORMATION
  Report Type: Spontaneous
  Country: US (occurrence: US)
  Receive Date: 20140512
  Receipt Date: 20140512
  Transmission Date: 20141212
  Serious: Yes (Hospitalization)
  Sender: FDA-Public Use
  Company Number: US-PFIZER INC-2014126332

PATIENT
  Age: 61 Year
  Sex: Female
  Weight: 47.62 kg

DRUGS (5)
  1. VFEND [Suspect]
     Dosage: 200 MG, 2X/DAY
     Dates: start: 20100113
  2. ACYCLOVIR [Concomitant]
     Dosage: 800 MG, 2X/DAY
     Dates: start: 2010
  3. TACROLIMUS [Concomitant]
     Indication: POST PROCEDURAL COMPLICATION
     Dosage: 0.5 MG, DAILY
  4. PANTOPRAZOLE [Concomitant]
     Indication: DYSPEPSIA
     Dosage: 40 MG, DAILY
  5. POTASSIUM CHLORIDE [Concomitant]
     Indication: BLOOD POTASSIUM DECREASED
     Dosage: 20 MEQ, DAILY

REACTIONS (4)
  - Malaise [Unknown]
  - Dehydration [Unknown]
  - Eating disorder [Unknown]
  - Asthenia [Unknown]
